FAERS Safety Report 23987159 (Version 1)
Quarter: 2024Q2

REPORT INFORMATION
  Report Type: Spontaneous
  Country: US (occurrence: US)
  Receive Date: 20240618
  Receipt Date: 20240618
  Transmission Date: 20240715
  Serious: Yes (Hospitalization, Other)
  Sender: FDA-Public Use
  Company Number: US-Oxford Pharmaceuticals, LLC-2158244

PATIENT
  Age: 16 Year
  Sex: Female

DRUGS (1)
  1. BACLOFEN [Suspect]
     Active Substance: BACLOFEN
     Indication: Dystonia

REACTIONS (5)
  - Toxicity to various agents [Unknown]
  - Respiratory depression [Unknown]
  - Nystagmus [Recovering/Resolving]
  - Lethargy [Unknown]
  - Dysphagia [Recovering/Resolving]
